FAERS Safety Report 10869553 (Version 2)
Quarter: 2015Q2

REPORT INFORMATION
  Report Type: Spontaneous
  Country: US (occurrence: US)
  Receive Date: 20150226
  Receipt Date: 20150408
  Transmission Date: 20150821
  Serious: No
  Sender: FDA-Public Use
  Company Number: US-GLAXOSMITHKLINE-US2015008086

PATIENT
  Age: 49 Year

DRUGS (2)
  1. VITAMIN C [Concomitant]
     Active Substance: ASCORBIC ACID
  2. VENTOLIN HFA [Suspect]
     Active Substance: ALBUTEROL SULFATE
     Indication: ASTHMA
     Dosage: 2 PUFF(S), VA
     Route: 055
     Dates: start: 201501

REACTIONS (5)
  - Hypoaesthesia oral [Recovering/Resolving]
  - Product quality issue [Unknown]
  - Drug ineffective [Recovered/Resolved]
  - Occupational exposure to toxic agent [Unknown]
  - Stomatitis [Unknown]

NARRATIVE: CASE EVENT DATE: 201501
